FAERS Safety Report 24184239 (Version 2)
Quarter: 2024Q3

REPORT INFORMATION
  Report Type: Spontaneous
  Country: US (occurrence: US)
  Receive Date: 20240807
  Receipt Date: 20240819
  Transmission Date: 20241016
  Serious: Yes (Hospitalization, Other)
  Sender: SANOFI AVENTIS
  Company Number: US-SA-SAC20240805000995

PATIENT
  Age: 74 Year
  Sex: Female
  Weight: 84.36 kg

DRUGS (1)
  1. DUPIXENT [Suspect]
     Active Substance: DUPILUMAB
     Indication: Asthma
     Dosage: 300 MG, QOW
     Route: 058

REACTIONS (6)
  - Fall [Unknown]
  - Hip fracture [Not Recovered/Not Resolved]
  - Femur fracture [Unknown]
  - Fracture pain [Unknown]
  - Mobility decreased [Unknown]
  - Cough [Unknown]

NARRATIVE: CASE EVENT DATE: 20240630
